FAERS Safety Report 5750269-6 (Version None)
Quarter: 2008Q2

REPORT INFORMATION
  Report Type: 
  Country: None (occurrence: None)
  Receive Date: 20080522
  Receipt Date: 20080522
  Transmission Date: 20081010
  Serious: No
  Sender: FDA-Public Use
  Company Number: None

PATIENT
  Sex: Female

DRUGS (2)
  1. ALPRAZOLAM 0.25MG UNKNOWN MANUFACTURER [Suspect]
     Indication: GENERALISED ANXIETY DISORDER
     Dosage: 0.25 BID PRN ORAL (IN PAST)
     Route: 048
  2. ALPRAZOLAM 0.25MG UNKNOWN MANUFACTURER [Suspect]
     Indication: PANIC DISORDER
     Dosage: 0.25 BID PRN ORAL (IN PAST)
     Route: 048

REACTIONS (2)
  - DRUG EFFECT DECREASED [None]
  - THERAPEUTIC RESPONSE UNEXPECTED WITH DRUG SUBSTITUTION [None]
